FAERS Safety Report 8354468-9 (Version None)
Quarter: 2012Q2

REPORT INFORMATION
  Report Type: 
  Country: None (occurrence: None)
  Receive Date: 20120511
  Receipt Date: 20120501
  Transmission Date: 20120825
  Serious: Yes (Other)
  Sender: FDA-Public Use
  Company Number: US-JNJFOC-20120503201

PATIENT
  Sex: Male

DRUGS (1)
  1. REMICADE [Suspect]
     Indication: ANKYLOSING SPONDYLITIS
     Route: 042

REACTIONS (6)
  - BLINDNESS [None]
  - RAYNAUD'S PHENOMENON [None]
  - PNEUMOTHORAX [None]
  - PNEUMONIA [None]
  - VOLVULUS [None]
  - PERIPHERAL ARTERIAL OCCLUSIVE DISEASE [None]
